FAERS Safety Report 8777481 (Version 1)
Quarter: 2012Q4

REPORT INFORMATION
  Report Type: 
  Country: US (occurrence: US)
  Receive Date: 20120911
  Receipt Date: 20120911
  Transmission Date: 20130627
  Serious: Yes (Hospitalization)
  Sender: FDA-Public Use
  Company Number: US-B.I. PHARMACEUTICALS,INC./RIDGEFIELD-2012-BP-21457BP

PATIENT
  Age: 82 Year
  Sex: Male
  Weight: 86 kg

DRUGS (11)
  1. PRADAXA [Suspect]
     Indication: ATRIAL FIBRILLATION
     Dosage: 300 mg
     Route: 048
     Dates: start: 201108, end: 20111212
  2. PRADAXA [Suspect]
     Dosage: 300 mg
     Route: 048
     Dates: start: 201205
  3. CALCIUM [Concomitant]
     Dosage: 500 mg
     Route: 048
  4. MULTIVITAMIN [Concomitant]
     Route: 048
  5. PRILOSEC [Concomitant]
     Dosage: 20 mg
     Route: 048
  6. VITAMIN C [Concomitant]
     Dosage: 500 mg
     Route: 048
  7. METOPROLOL [Concomitant]
     Indication: HYPERTENSION
     Dosage: 100 mg
     Route: 048
     Dates: end: 201208
  8. LISINOPRIL [Concomitant]
     Dosage: 20 mg
     Route: 048
  9. LIPITOR [Concomitant]
     Dosage: 10 mg
     Route: 048
  10. VITAMIN D [Concomitant]
     Route: 048
  11. SENNA PLUS [Concomitant]
     Indication: CONSTIPATION
     Route: 048

REACTIONS (5)
  - Cerebrovascular accident [Recovered/Resolved with Sequelae]
  - Convulsion [Not Recovered/Not Resolved]
  - Catheter placement [Recovered/Resolved]
  - Anxiety [Not Recovered/Not Resolved]
  - Heart rate decreased [Not Recovered/Not Resolved]
